FAERS Safety Report 7900273-4 (Version None)
Quarter: 2011Q4

REPORT INFORMATION
  Report Type: 
  Country: None (occurrence: None)
  Receive Date: 20111108
  Receipt Date: 20111027
  Transmission Date: 20120403
  Serious: Yes (Other)
  Sender: FDA-Public Use
  Company Number: US-JNJFOC-20111013177

PATIENT
  Sex: Female
  Weight: 102.51 kg

DRUGS (7)
  1. INFLIXIMAB, RECOMBINANT [Suspect]
     Dosage: 5 INFUSIONS PRIOR TO TREAT REGISTRATION
     Route: 042
  2. INFLIXIMAB, RECOMBINANT [Suspect]
     Dosage: LAST DOCUMENTED INFLIXIMAB TREATMENT; 44 INFUSINS SINCE REGISTRATION
     Route: 042
     Dates: start: 20100106
  3. INFLIXIMAB, RECOMBINANT [Suspect]
     Route: 042
     Dates: start: 20060220
  4. METHOTREXATE [Concomitant]
  5. INFLIXIMAB, RECOMBINANT [Suspect]
     Route: 042
     Dates: start: 20050706
  6. INFLIXIMAB, RECOMBINANT [Suspect]
     Indication: CROHN'S DISEASE
     Route: 042
     Dates: start: 20031029
  7. INFLIXIMAB, RECOMBINANT [Suspect]
     Route: 042
     Dates: start: 20030108

REACTIONS (1)
  - RENAL CELL CARCINOMA [None]
